FAERS Safety Report 12581177 (Version 1)
Quarter: 2016Q3

REPORT INFORMATION
  Report Type: Spontaneous
  Country: DK (occurrence: FR)
  Receive Date: 20160721
  Receipt Date: 20160721
  Transmission Date: 20161109
  Serious: Yes (Hospitalization)
  Sender: FDA-Public Use
  Company Number: FR-FRI-1000086241

PATIENT
  Age: 78 Year
  Sex: Female

DRUGS (4)
  1. ESCITALOPRAM [Suspect]
     Active Substance: ESCITALOPRAM OXALATE
     Indication: PRODUCT USED FOR UNKNOWN INDICATION
     Dosage: 5 MG
     Route: 048
     Dates: end: 20160606
  2. TAHOR [Concomitant]
     Active Substance: ATORVASTATIN CALCIUM
     Indication: PRODUCT USED FOR UNKNOWN INDICATION
     Dosage: 40 MG
     Route: 048
     Dates: end: 20160606
  3. KARDEGIC [Suspect]
     Active Substance: ASPIRIN LYSINE
     Indication: PROPHYLAXIS
     Dosage: 160 MG
     Route: 048
     Dates: end: 20160606
  4. TEMERIT [Concomitant]
     Active Substance: NEBIVOLOL
     Indication: HYPERTENSION
     Dosage: 2.5 MG
     Route: 048

REACTIONS (3)
  - Hemiparesis [Recovering/Resolving]
  - Cerebral haematoma [Recovering/Resolving]
  - Hemianopia [Recovering/Resolving]

NARRATIVE: CASE EVENT DATE: 20160606
